FAERS Safety Report 13448884 (Version 1)
Quarter: 2017Q2

REPORT INFORMATION
  Report Type: Spontaneous
  Country: US (occurrence: US)
  Receive Date: 20170417
  Receipt Date: 20170417
  Transmission Date: 20170830
  Serious: No
  Sender: FDA-Public Use
  Company Number: US-SHIONOGI, INC-2016000949

PATIENT
  Sex: Female

DRUGS (1)
  1. OSPHENA [Suspect]
     Active Substance: OSPEMIFENE
     Indication: PRODUCT USED FOR UNKNOWN INDICATION
     Dosage: 60 MG, QD
     Route: 048
     Dates: start: 20160707

REACTIONS (7)
  - Labelled drug-drug interaction medication error [Unknown]
  - Vulvovaginal erythema [Not Recovered/Not Resolved]
  - Vulvovaginal mycotic infection [Unknown]
  - Excoriation [Not Recovered/Not Resolved]
  - Vulvovaginal pruritus [Not Recovered/Not Resolved]
  - Vaginal discharge [Unknown]
  - Bacterial infection [Unknown]

NARRATIVE: CASE EVENT DATE: 2016
